FAERS Safety Report 25359918 (Version 2)
Quarter: 2025Q2

REPORT INFORMATION
  Report Type: Spontaneous
  Country: EU (occurrence: EU)
  Receive Date: 20250526
  Receipt Date: 20250604
  Transmission Date: 20250716
  Serious: Yes (Death, Life-Threatening)
  Sender: BAUSCH AND LOMB
  Company Number: FR-MLMSERVICE-20250516-PI506717-00117-1

PATIENT
  Age: 46 Year
  Sex: Female

DRUGS (1)
  1. DEXAMETHASONE SODIUM PHOSPHATE [Suspect]
     Active Substance: DEXAMETHASONE SODIUM PHOSPHATE
     Indication: Plasma cell leukaemia
     Route: 065

REACTIONS (1)
  - Strongyloidiasis [Fatal]
